FAERS Safety Report 23781324 (Version 5)
Quarter: 2024Q4

REPORT INFORMATION
  Report Type: Spontaneous
  Country: US (occurrence: US)
  Receive Date: 20240425
  Receipt Date: 20241202
  Transmission Date: 20250115
  Serious: Yes (Hospitalization, Other)
  Sender: NOVARTIS
  Company Number: US-002147023-NVSC2024US083761

PATIENT
  Sex: Male

DRUGS (1)
  1. COSENTYX [Suspect]
     Active Substance: SECUKINUMAB
     Indication: Product used for unknown indication
     Dosage: 300 MG, Q4W (2X/150MG)
     Route: 065

REACTIONS (10)
  - Thyroid cancer [Unknown]
  - Nasopharyngitis [Unknown]
  - Dyspnoea [Unknown]
  - Throat cancer [Unknown]
  - Injury associated with device [Unknown]
  - Drug dose omission by device [Unknown]
  - Device malfunction [Unknown]
  - Device delivery system issue [Unknown]
  - Influenza [Recovering/Resolving]
  - Product dose omission issue [Unknown]
